FAERS Safety Report 4554562-4 (Version None)
Quarter: 2005Q1

REPORT INFORMATION
  Report Type: 
  Country: None (occurrence: None)
  Receive Date: 20050118
  Receipt Date: 20050110
  Transmission Date: 20050727
  Serious: Yes (Disabling)
  Sender: FDA-Public Use
  Company Number: SE-BRISTOL-MYERS SQUIBB COMPANY-12820171

PATIENT
  Age: 60 Year
  Sex: Female

DRUGS (11)
  1. TAXOL [Suspect]
     Indication: OVARIAN CANCER
     Route: 042
     Dates: start: 20010613, end: 20011101
  2. PARAPLATIN [Suspect]
     Indication: OVARIAN CANCER
     Route: 042
     Dates: start: 20010613, end: 20011101
  3. EPIRUBICIN [Suspect]
     Indication: OVARIAN CANCER
     Route: 042
     Dates: start: 20010613, end: 20011101
  4. WARAN [Concomitant]
  5. BETAPRED [Concomitant]
  6. PRIMPERAN INJ [Concomitant]
  7. ACETAMINOPHEN [Concomitant]
  8. DEXOFEN [Concomitant]
  9. SORBITOL [Concomitant]
  10. IMMOVANE [Concomitant]
  11. STESOLID [Concomitant]

REACTIONS (6)
  - ABDOMINAL PAIN [None]
  - ARTHRALGIA [None]
  - BONE PAIN [None]
  - MUSCLE RIGIDITY [None]
  - NEUROPATHY [None]
  - STOMATITIS [None]
